FAERS Safety Report 22586873 (Version 2)
Quarter: 2024Q2

REPORT INFORMATION
  Report Type: Spontaneous
  Country: US (occurrence: US)
  Receive Date: 20230611
  Receipt Date: 20240418
  Transmission Date: 20240716
  Serious: No
  Sender: FDA-Public Use
  Company Number: US-AMGEN-USASP2023098154

PATIENT
  Age: 19 Year
  Sex: Male

DRUGS (8)
  1. RITUXIMAB [Suspect]
     Active Substance: RITUXIMAB
     Indication: Henoch-Schonlein purpura
     Dosage: UNK
     Route: 065
  2. RITUXIMAB [Suspect]
     Active Substance: RITUXIMAB
     Indication: IgA nephropathy
  3. LENIOLISIB [Concomitant]
     Active Substance: LENIOLISIB
     Indication: Henoch-Schonlein purpura
     Dosage: 70 MILLIGRAM, BID
  4. LENIOLISIB [Concomitant]
     Active Substance: LENIOLISIB
     Indication: IgA nephropathy
  5. PREDNISONE [Concomitant]
     Active Substance: PREDNISONE
     Indication: Henoch-Schonlein purpura
     Dosage: UNK, QD
  6. PREDNISONE [Concomitant]
     Active Substance: PREDNISONE
     Indication: IgA nephropathy
  7. HUMAN IMMUNOGLOBULIN G [Concomitant]
     Active Substance: HUMAN IMMUNOGLOBULIN G
     Indication: Henoch-Schonlein purpura
     Dosage: UNK
     Route: 058
  8. HUMAN IMMUNOGLOBULIN G [Concomitant]
     Active Substance: HUMAN IMMUNOGLOBULIN G
     Indication: IgA nephropathy

REACTIONS (2)
  - Drug effective for unapproved indication [Unknown]
  - Off label use [Unknown]
